FAERS Safety Report 6114148-7 (Version None)
Quarter: 2009Q1

REPORT INFORMATION
  Report Type: 
  Country: None (occurrence: None)
  Receive Date: 20090312
  Receipt Date: 20080527
  Transmission Date: 20090719
  Serious: No
  Sender: FDA-Public Use
  Company Number: US-ABBOTT-08P-163-0453481-00

PATIENT
  Sex: Male
  Weight: 98.064 kg

DRUGS (3)
  1. DEPAKOTE [Suspect]
     Indication: EPILEPSY
     Route: 048
     Dates: start: 20000101
  2. DEPAKOTE [Suspect]
     Route: 048
     Dates: start: 19980101, end: 20000101
  3. PRIMIDONE [Concomitant]
     Indication: EPILEPSY
     Route: 048
     Dates: start: 19980101

REACTIONS (3)
  - CONVULSION [None]
  - FEELING ABNORMAL [None]
  - IRRITABILITY [None]
